FAERS Safety Report 23032428 (Version 1)
Quarter: 2023Q4

REPORT INFORMATION
  Report Type: Spontaneous
  Country: EG (occurrence: EG)
  Receive Date: 20231005
  Receipt Date: 20231005
  Transmission Date: 20240109
  Serious: Yes (Other)
  Sender: FDA-Public Use
  Company Number: EG-HIKMA PHARMACEUTICALS-EG-H14001-23-65634

PATIENT

DRUGS (10)
  1. CAPECITABINE [Suspect]
     Active Substance: CAPECITABINE
     Indication: Prostate cancer
     Dosage: 3 TABLET 2 TIMES DAILY FOR 14 DAYS, EVERY TAB DAY 1,8 EVERY 21 DAYS
     Route: 065
     Dates: start: 20230912
  2. GEMCITABINE [Suspect]
     Active Substance: GEMCITABINE
     Indication: Prostate cancer
     Dosage: 1600 MILLIGRAM, DAY 1,8 EVERY 21 DAYS
     Route: 041
     Dates: start: 20230912
  3. AMADOL [TRAMADOL HYDROCHLORIDE] [Concomitant]
     Indication: Pain management
     Dosage: 100 MILLIGRAM
     Route: 065
  4. AMITRIPTYLINE PAMOATE [Concomitant]
     Active Substance: AMITRIPTYLINE PAMOATE
     Indication: Pain management
     Dosage: 25 MILLIGRAM
     Route: 065
  5. NEBIVOLOL HYDROCHLORIDE [Concomitant]
     Active Substance: NEBIVOLOL HYDROCHLORIDE
     Indication: Hypertension
     Dosage: 5 MILLIGRAM
     Route: 065
  6. MELLITOFIX MET [Concomitant]
     Indication: Type 2 diabetes mellitus
     Dosage: 5 MG/ 500 MG
     Route: 065
  7. GAPTIN [Concomitant]
     Indication: Neuropathy peripheral
     Dosage: 400 MILLIGRAM
     Route: 065
  8. ATORVASTATIN [Concomitant]
     Active Substance: ATORVASTATIN
     Indication: Blood cholesterol increased
     Dosage: 20 MILLIGRAM
     Route: 065
  9. ASPIRIN [Concomitant]
     Active Substance: ASPIRIN
     Indication: Coronary artery disease
     Dosage: 75 MILLIGRAM
     Route: 065
  10. ESMATAC [Concomitant]
     Indication: Dyspepsia
     Dosage: UNKNOWN
     Route: 065

REACTIONS (4)
  - Anisocytosis [Recovered/Resolved]
  - Normochromic normocytic anaemia [Recovered/Resolved]
  - Leukopenia [Recovered/Resolved]
  - Neutropenia [Recovered/Resolved]

NARRATIVE: CASE EVENT DATE: 20230912
